FAERS Safety Report 15599604 (Version 1)
Quarter: 2018Q4

REPORT INFORMATION
  Report Type: Spontaneous
  Country: US (occurrence: US)
  Receive Date: 20181108
  Receipt Date: 20181108
  Transmission Date: 20190205
  Serious: No
  Sender: FDA-Public Use
  Company Number: US-BAUSCH-BL-2018-030362

PATIENT
  Age: 67 Year
  Sex: Female
  Weight: 59.93 kg

DRUGS (4)
  1. XIFAXAN [Suspect]
     Active Substance: RIFAXIMIN
     Indication: IRRITABLE BOWEL SYNDROME
     Dosage: STARTED ABOUT 2 WEEKS AGO
     Route: 048
     Dates: start: 201810, end: 201810
  2. METOPROLOL. [Concomitant]
     Active Substance: METOPROLOL
     Indication: PRODUCT USED FOR UNKNOWN INDICATION
  3. NEXIUM [Concomitant]
     Active Substance: ESOMEPRAZOLE MAGNESIUM
     Indication: PRODUCT USED FOR UNKNOWN INDICATION
  4. XIFAXAN [Suspect]
     Active Substance: RIFAXIMIN
     Dosage: TOOK ONE TABLET
     Route: 048
     Dates: start: 20181027, end: 20181027

REACTIONS (8)
  - Inappropriate schedule of product administration [Recovered/Resolved]
  - Swelling [Recovered/Resolved]
  - Swollen tongue [Recovered/Resolved]
  - Facial pain [Recovered/Resolved]
  - Ill-defined disorder [Recovered/Resolved]
  - Therapy cessation [Not Recovered/Not Resolved]
  - Salivary gland enlargement [Recovered/Resolved]
  - Dizziness [Recovered/Resolved]

NARRATIVE: CASE EVENT DATE: 201810
